FAERS Safety Report 22059179 (Version 1)
Quarter: 2023Q1

REPORT INFORMATION
  Report Type: Spontaneous
  Country: US (occurrence: None)
  Receive Date: 20230302
  Receipt Date: 20230302
  Transmission Date: 20230418
  Serious: Yes (Hospitalization, Other)
  Sender: FDA-Public Use
  Company Number: None

PATIENT
  Age: 27 Year
  Sex: Female

DRUGS (4)
  1. SILDENAFIL CITRATE [Suspect]
     Active Substance: SILDENAFIL CITRATE
     Indication: Pulmonary hypertension
     Route: 065
  2. EPOPROSTENOL [Suspect]
     Active Substance: EPOPROSTENOL
     Indication: Pulmonary hypertension
     Route: 042
  3. GEMCITABINE [Suspect]
     Active Substance: GEMCITABINE
  4. CARBOPLATIN [Suspect]
     Active Substance: CARBOPLATIN

REACTIONS (14)
  - Pulmonary hypertension [None]
  - Thrombocytopenia [None]
  - Right ventricular failure [None]
  - Shock [None]
  - Mouth haemorrhage [None]
  - Acute kidney injury [None]
  - Acute respiratory failure [None]
  - Metabolic acidosis [None]
  - White blood cell count increased [None]
  - Blood lactate dehydrogenase increased [None]
  - Fibrin D dimer increased [None]
  - Drug ineffective for unapproved indication [None]
  - Pulseless electrical activity [None]
  - Cardiac arrest [None]
